FAERS Safety Report 7884933-X (Version None)
Quarter: 2011Q4

REPORT INFORMATION
  Report Type: 
  Country: None (occurrence: None)
  Receive Date: 20111102
  Receipt Date: 20111019
  Transmission Date: 20120403
  Serious: Yes (Other)
  Sender: FDA-Public Use
  Company Number: PHEH2011US07269

PATIENT
  Sex: Female

DRUGS (17)
  1. HYDROXYCHLOROQUINE SULFATE [Suspect]
     Dosage: 200 MG, BID
  2. FUROSEMIDE [Suspect]
     Dosage: 20 MG, QD
  3. TYLENOL-500 [Suspect]
     Dosage: 650 MG, BID
  4. PREDNISONE [Suspect]
     Dosage: 5 MG, BID
  5. ASPIRIN [Suspect]
     Dosage: 325 MG, QD
  6. ALBUTEROL [Suspect]
     Dosage: 1 DF, TID
  7. EXFORGE [Suspect]
     Dosage: 1 DF, QD (5/320 MG)
  8. ONGLYZA [Suspect]
     Dosage: 5 MG, QD
  9. MIRALAX [Suspect]
     Dosage: 1 DF, QD
  10. ACTONEL [Suspect]
     Dosage: 150 MG, QMO
  11. AMBIEN [Suspect]
     Dosage: 10 MG, QD
  12. FOLIC ACID [Suspect]
     Dosage: 1 MG, QD
  13. PROTONIX [Suspect]
     Dosage: 40 MG, QD
  14. METHADONE HCL [Suspect]
     Dosage: 5 MG, BID
  15. EVOXAC [Suspect]
     Dosage: 30 MG, TID
  16. SYMBICORT [Suspect]
     Dosage: 1 DF, BID
  17. METOPROLOL TARTRATE [Suspect]
     Dosage: 25 MG, BID

REACTIONS (1)
  - LOCALISED INFECTION [None]
